FAERS Safety Report 6524186-8 (Version None)
Quarter: 2009Q4

REPORT INFORMATION
  Report Type: 
  Country: None (occurrence: None)
  Receive Date: 20091230
  Receipt Date: 20091230
  Transmission Date: 20100525
  Serious: No
  Sender: FDA-Public Use
  Company Number: None

PATIENT
  Age: 63 Year
  Sex: Female
  Weight: 68.0396 kg

DRUGS (4)
  1. COLD REMEDY ORAL MIST [Suspect]
     Dosage: 2 DOSES - 2 DOSES
     Dates: start: 20091024, end: 20091026
  2. PLAVIX [Concomitant]
  3. MULTI-VITAMINS [Concomitant]
  4. SUPPLEMENTS [Concomitant]

REACTIONS (1)
  - AGEUSIA [None]
